FAERS Safety Report 4346078-5 (Version None)
Quarter: 2004Q1

REPORT INFORMATION
  Report Type: 
  Country: None (occurrence: None)
  Receive Date: 20040325
  Receipt Date: 20040205
  Transmission Date: 20041129
  Serious: No
  Sender: FDA-Public Use
  Company Number: USA040258619

PATIENT
  Age: 53 Year
  Sex: Female
  Weight: 41 kg

DRUGS (6)
  1. FORTEO [Suspect]
     Dosage: 20 UG
     Dates: start: 20040116
  2. HYDROCODONE [Concomitant]
  3. NEURONTIN [Concomitant]
  4. UNIVASC [Concomitant]
  5. ELAVIL [Concomitant]
  6. CALCIUM [Concomitant]

REACTIONS (3)
  - INJECTION SITE BURNING [None]
  - INJECTION SITE ERYTHEMA [None]
  - INJECTION SITE PAIN [None]
